FAERS Safety Report 6779545-5 (Version None)
Quarter: 2010Q2

REPORT INFORMATION
  Report Type: 
  Country: None (occurrence: None)
  Receive Date: 20100618
  Receipt Date: 20100609
  Transmission Date: 20101027
  Serious: Yes (Other)
  Sender: FDA-Public Use
  Company Number: DE-NAPPMUNDI-DEU-2010-0006324

PATIENT
  Age: 40 Year
  Sex: Female

DRUGS (1)
  1. MST 60 MG MUNDIPHARMA [Suspect]
     Indication: DRUG USE FOR UNKNOWN INDICATION

REACTIONS (2)
  - ENAMEL ANOMALY [None]
  - TOOTH FRACTURE [None]
